FAERS Safety Report 9262996 (Version 1)
Quarter: 2013Q1

REPORT INFORMATION
  Report Type: Spontaneous
  Country: US (occurrence: None)
  Receive Date: 20121212
  Receipt Date: 20121212
  Transmission Date: 20140127
  Serious: No
  Sender: FDA-Public Use
  Company Number: 1209USA000708

PATIENT
  Age: 48 Year
  Sex: Female

DRUGS (3)
  1. VICTRELIS [Suspect]
     Route: 048
  2. WELLBUTRIN (BUPROPION HYDROCHLORIDE) [Concomitant]
  3. LEXAPRO (ESCITALOPRAM OXALATE) TABLET [Concomitant]

REACTIONS (2)
  - Glossitis [None]
  - Dysgeusia [None]
